FAERS Safety Report 20768110 (Version 1)
Quarter: 2022Q2

REPORT INFORMATION
  Report Type: Spontaneous
  Country: US (occurrence: US)
  Receive Date: 20220429
  Receipt Date: 20220429
  Transmission Date: 20220721
  Serious: No
  Sender: FDA-Public Use
  Company Number: US-UNITED THERAPEUTICS-UNT-2022-007193

PATIENT
  Age: 38 Year
  Sex: Female
  Weight: 95.238 kg

DRUGS (5)
  1. REMODULIN [Suspect]
     Active Substance: TREPROSTINIL
     Indication: Pulmonary arterial hypertension
     Dosage: UNK, CONTINUING
     Route: 041
     Dates: start: 20220325
  2. REMODULIN [Suspect]
     Active Substance: TREPROSTINIL
     Dosage: 0.010 ?G/KG, CONTINUING
     Route: 041
     Dates: start: 202203
  3. REMODULIN [Suspect]
     Active Substance: TREPROSTINIL
     Dosage: UNK, CONTINUING
     Route: 041
  4. OPSUMIT [Suspect]
     Active Substance: MACITENTAN
     Indication: Pulmonary arterial hypertension
     Dosage: UNK
     Route: 048
     Dates: start: 202203
  5. TADALAFIL [Concomitant]
     Active Substance: TADALAFIL
     Indication: Product used for unknown indication
     Route: 065

REACTIONS (11)
  - Headache [Unknown]
  - Nausea [Unknown]
  - Myalgia [Unknown]
  - Pain in jaw [Unknown]
  - Chest discomfort [Recovered/Resolved]
  - Bone pain [Unknown]
  - Contusion [Unknown]
  - Ear swelling [Unknown]
  - Swelling face [Unknown]
  - Hypoacusis [Unknown]
  - Chest pain [Unknown]

NARRATIVE: CASE EVENT DATE: 20220301
